FAERS Safety Report 11432216 (Version 8)
Quarter: 2015Q4

REPORT INFORMATION
  Report Type: Report from Study
  Country: RU (occurrence: RU)
  Receive Date: 20150828
  Receipt Date: 20151211
  Transmission Date: 20160304
  Serious: Yes (Death)
  Sender: FDA-Public Use
  Company Number: RU-PFIZER INC-2015282979

PATIENT
  Age: 70 Year
  Sex: Female
  Weight: 63 kg

DRUGS (6)
  1. PALBOCICLIB [Suspect]
     Active Substance: PALBOCICLIB
     Indication: BREAST CANCER METASTATIC
     Dosage: 125 MG, ONCE DAILY, CYCLIC, 3 WEEKS ON/1 WEEK OFF EVERY 28 DAY CYCLE
     Route: 048
     Dates: start: 20140602, end: 20150809
  2. OFTAN-TIMOLOL [Concomitant]
     Indication: GLAUCOMA
     Dosage: 1X/DAY
     Route: 047
     Dates: start: 201212
  3. LETROZOLE. [Suspect]
     Active Substance: LETROZOLE
     Indication: BREAST CANCER METASTATIC
     Dosage: 2.5 MG, DAILY
     Route: 048
     Dates: start: 20140602, end: 20150809
  4. ENAP /00574902/ [Concomitant]
     Indication: HYPERTENSION
     Dosage: 5 MG, 1X/DAY
     Route: 048
     Dates: start: 2008
  5. ARTROZAN [Suspect]
     Active Substance: MELOXICAM
     Indication: MUSCULOSKELETAL PAIN
     Dosage: 2.5 ML, 1X/DAY
     Route: 030
     Dates: start: 20150806, end: 20150807
  6. ACIDI ZOLIDROCI [Concomitant]
     Indication: BREAST CANCER
     Dosage: 4 MG, ONCE A MONTH, SOLUTION
     Route: 042
     Dates: start: 20141226, end: 20150804

REACTIONS (10)
  - Cardiovascular insufficiency [Fatal]
  - Pulmonary oedema [None]
  - Syncope [None]
  - Emphysema [None]
  - Musculoskeletal pain [None]
  - Sudden death [None]
  - Cerebral haemorrhage [None]
  - Hepatic steatosis [None]
  - Brain oedema [None]
  - Arteriosclerosis coronary artery [Fatal]

NARRATIVE: CASE EVENT DATE: 20150810
